FAERS Safety Report 19178800 (Version 1)
Quarter: 2021Q2

REPORT INFORMATION
  Report Type: Spontaneous
  Country: US (occurrence: US)
  Receive Date: 20210421
  Receipt Date: 20210421
  Transmission Date: 20210717
  Serious: Yes (Life-Threatening, Disabling, Other)
  Sender: FDA-Public Use
  Company Number: None

PATIENT
  Age: 67 Year
  Sex: Male
  Weight: 66.15 kg

DRUGS (5)
  1. HYDROCODONE=ACETAMINOPHEN [Concomitant]
  2. TIZANIDINE. [Concomitant]
     Active Substance: TIZANIDINE
  3. CENTRUM SILVER [Concomitant]
     Active Substance: MINERALS\VITAMINS
  4. HYDROCODONE?ACETAMINOPHEN 10?325 MG; GENETIC FOR NORCO [Suspect]
     Active Substance: ACETAMINOPHEN\HYDROCODONE
     Indication: PAIN
     Dosage: ?          QUANTITY:1 TABLET(S);?
     Route: 048
     Dates: start: 20201124, end: 20210227
  5. ASPIRIN. [Concomitant]
     Active Substance: ASPIRIN

REACTIONS (7)
  - Mental impairment [None]
  - Dysstasia [None]
  - Panic attack [None]
  - Incorrect dose administered [None]
  - Paranoia [None]
  - Wrong technique in product usage process [None]
  - Anxiety [None]

NARRATIVE: CASE EVENT DATE: 20210115
